FAERS Safety Report 11206278 (Version 2)
Quarter: 2016Q1

REPORT INFORMATION
  Report Type: Report from Study
  Country: US (occurrence: US)
  Receive Date: 20150622
  Receipt Date: 20160118
  Transmission Date: 20160525
  Serious: Yes (Other)
  Sender: FDA-Public Use
  Company Number: US-SA-2014SA009378

PATIENT
  Age: 58 Year
  Sex: Female

DRUGS (10)
  1. NAPROXEN. [Concomitant]
     Active Substance: NAPROXEN
  2. VITAMIN E [Concomitant]
     Active Substance: .ALPHA.-TOCOPHEROL
  3. OMEGA 3 [Concomitant]
     Active Substance: OMEGA-3 FATTY ACIDS
  4. FIRMAGON [Concomitant]
     Active Substance: DEGARELIX ACETATE
     Dosage: DROPS TAKEN NIGHTLY
  5. ARICEPT [Concomitant]
     Active Substance: DONEPEZIL HYDROCHLORIDE
  6. PROZAC [Concomitant]
     Active Substance: FLUOXETINE HYDROCHLORIDE
  7. CLONAZEPAM. [Concomitant]
     Active Substance: CLONAZEPAM
  8. LIDODERM [Concomitant]
     Active Substance: LIDOCAINE
  9. AUBAGIO [Suspect]
     Active Substance: TERIFLUNOMIDE
     Indication: MULTIPLE SCLEROSIS
     Route: 048
     Dates: start: 20140116
  10. VITAMIN D3 [Concomitant]
     Active Substance: CHOLECALCIFEROL

REACTIONS (22)
  - Immune system disorder [Unknown]
  - Eczema [Unknown]
  - Gastrointestinal motility disorder [Unknown]
  - Diarrhoea [Not Recovered/Not Resolved]
  - Multiple sclerosis relapse [Unknown]
  - Flatulence [Unknown]
  - Decreased appetite [Unknown]
  - Weight decreased [Unknown]
  - Hip arthroplasty [Unknown]
  - Flatulence [Not Recovered/Not Resolved]
  - Skin reaction [Unknown]
  - Peripheral swelling [Not Recovered/Not Resolved]
  - Psoriasis [Unknown]
  - Visual impairment [Unknown]
  - Urinary tract infection [Unknown]
  - Eye swelling [Unknown]
  - Pruritus [Unknown]
  - Muscle spasticity [Unknown]
  - Alopecia [Unknown]
  - Therapeutic response unexpected [Unknown]
  - Swelling face [Unknown]
  - Sunburn [Unknown]

NARRATIVE: CASE EVENT DATE: 201401
